FAERS Safety Report 13694073 (Version 1)
Quarter: 2017Q2

REPORT INFORMATION
  Report Type: Spontaneous
  Country: US (occurrence: US)
  Receive Date: 20170627
  Receipt Date: 20170627
  Transmission Date: 20170830
  Serious: No
  Sender: FDA-Public Use
  Company Number: US-ELI_LILLY_AND_COMPANY-US201706008381

PATIENT
  Age: 70 Year
  Sex: Female

DRUGS (3)
  1. TRULICITY [Suspect]
     Active Substance: DULAGLUTIDE
     Indication: TYPE 2 DIABETES MELLITUS
     Dosage: 0.75 MG, UNKNOWN
     Route: 058
     Dates: start: 2016
  2. LEVEMIR [Concomitant]
     Active Substance: INSULIN DETEMIR
     Dosage: 15 U, EACH EVENING
  3. TRULICITY [Suspect]
     Active Substance: DULAGLUTIDE
     Dosage: 0.75 MG, UNKNOWN
     Route: 058
     Dates: start: 2016

REACTIONS (6)
  - Blood glucose decreased [Unknown]
  - Feeling abnormal [Unknown]
  - Heart rate decreased [Unknown]
  - Road traffic accident [Unknown]
  - Asthenia [Not Recovered/Not Resolved]
  - Neck injury [Unknown]

NARRATIVE: CASE EVENT DATE: 201705
